FAERS Safety Report 18036397 (Version 1)
Quarter: 2020Q3

REPORT INFORMATION
  Report Type: Report from Study
  Country: US (occurrence: US)
  Receive Date: 20200717
  Receipt Date: 20200717
  Transmission Date: 20201103
  Serious: Yes (Hospitalization, Other)
  Sender: FDA-Public Use
  Company Number: US-NVP-000161

PATIENT
  Age: 68 Year

DRUGS (3)
  1. PREDNISONE. [Suspect]
     Active Substance: PREDNISONE
     Indication: PROPHYLAXIS AGAINST TRANSPLANT REJECTION
     Route: 065
  2. MYCOPHENOLATE MOFETIL. [Suspect]
     Active Substance: MYCOPHENOLATE MOFETIL
     Indication: PROPHYLAXIS AGAINST TRANSPLANT REJECTION
     Route: 065
  3. TACROLIMUS. [Suspect]
     Active Substance: TACROLIMUS
     Indication: PROPHYLAXIS AGAINST TRANSPLANT REJECTION
     Route: 065

REACTIONS (12)
  - COVID-19 [Recovered/Resolved]
  - Troponin T increased [Unknown]
  - Acute kidney injury [Recovering/Resolving]
  - Wound infection [Unknown]
  - Inflammation [Unknown]
  - Product use in unapproved indication [Unknown]
  - Staphylococcal infection [Unknown]
  - Acute respiratory failure [Recovering/Resolving]
  - Right atrial pressure increased [Recovering/Resolving]
  - Pulmonary arterial wedge pressure increased [Recovering/Resolving]
  - Chronic kidney disease [Recovering/Resolving]
  - Acute respiratory distress syndrome [Recovering/Resolving]
